FAERS Safety Report 23050003 (Version 2)
Quarter: 2023Q4

REPORT INFORMATION
  Report Type: Report from Study
  Country: BR (occurrence: BR)
  Receive Date: 20231010
  Receipt Date: 20231115
  Transmission Date: 20240110
  Serious: Yes (Disabling)
  Sender: FDA-Public Use
  Company Number: BR-002147023-NVSC2023BR216995

PATIENT
  Sex: Male

DRUGS (1)
  1. ENTRESTO [Suspect]
     Active Substance: SACUBITRIL\VALSARTAN
     Indication: Product used for unknown indication
     Dosage: 50 MG, BID
     Route: 048

REACTIONS (2)
  - Movement disorder [Unknown]
  - Pain [Unknown]

NARRATIVE: CASE EVENT DATE: 20230101
